FAERS Safety Report 7812104-1 (Version None)
Quarter: 2011Q4

REPORT INFORMATION
  Report Type: 
  Country: None (occurrence: None)
  Receive Date: 20111013
  Receipt Date: 20110928
  Transmission Date: 20120403
  Serious: Yes (Other)
  Sender: FDA-Public Use
  Company Number: PHHY2011BR89663

PATIENT
  Age: 44 Year
  Sex: Female
  Weight: 84 kg

DRUGS (3)
  1. CAPTOPRIL [Suspect]
     Dosage: 50 MG, TID
  2. SIMVASTATIN [Suspect]
     Indication: HYPERCHOLESTEROLAEMIA
     Dosage: 40 MG, DAILY
  3. HYDROCHLOROTHIAZIDE [Suspect]
     Dosage: 12.5 MG, UNK

REACTIONS (5)
  - THERAPEUTIC RESPONSE DECREASED [None]
  - BLOOD PRESSURE FLUCTUATION [None]
  - DYSLIPIDAEMIA [None]
  - HYPERTENSION [None]
  - HEADACHE [None]
